FAERS Safety Report 5483271-2 (Version None)
Quarter: 2007Q4

REPORT INFORMATION
  Report Type: 
  Country: None (occurrence: None)
  Receive Date: 20071012
  Receipt Date: 20071004
  Transmission Date: 20080405
  Serious: Yes (Other)
  Sender: FDA-Public Use
  Company Number: PHBS2007IT16603

PATIENT
  Age: 57 Year
  Sex: Male

DRUGS (4)
  1. PAMIDRONATE DISODIUM [Suspect]
     Indication: METASTASIS
     Dosage: UNK, QMO
  2. ZOLEDRONIC ACID [Suspect]
     Indication: METASTASIS
     Dosage: UNK, QMO
  3. GEMCITABINE HCL [Concomitant]
  4. CAPECITABINE [Concomitant]

REACTIONS (16)
  - BONE DEBRIDEMENT [None]
  - BONE DISORDER [None]
  - COMPUTERISED TOMOGRAM ABNORMAL [None]
  - HYPERBARIC OXYGEN THERAPY [None]
  - LOOSE TOOTH [None]
  - MANDIBULECTOMY [None]
  - METASTASES TO BONE [None]
  - MYOSITIS [None]
  - NUCLEAR MAGNETIC RESONANCE IMAGING ABNORMAL [None]
  - OSTEOMYELITIS [None]
  - OSTEONECROSIS [None]
  - PAIN IN JAW [None]
  - PLASTIC SURGERY TO THE FACE [None]
  - SWELLING FACE [None]
  - TOOTH EXTRACTION [None]
  - TRISMUS [None]
